FAERS Safety Report 11892813 (Version 13)
Quarter: 2021Q2

REPORT INFORMATION
  Report Type: Spontaneous
  Country: US (occurrence: US)
  Receive Date: 20160106
  Receipt Date: 20210609
  Transmission Date: 20210716
  Serious: Yes (Other)
  Sender: FDA-Public Use
  Company Number: US-PFIZER INC-2015388526

PATIENT
  Age: 44 Year
  Sex: Male

DRUGS (20)
  1. BOSULIF [Suspect]
     Active Substance: BOSUTINIB MONOHYDRATE
     Dosage: 400 MG, DAILY (TAKE 4 TABLETS OF 100 MG)
     Route: 048
     Dates: start: 20160129
  2. BOSULIF [Suspect]
     Active Substance: BOSUTINIB MONOHYDRATE
     Indication: CHRONIC MYELOID LEUKAEMIA
     Dosage: 500 MG, UNK
     Dates: start: 20130906
  3. BOSULIF [Suspect]
     Active Substance: BOSUTINIB MONOHYDRATE
     Dosage: 500 MG, UNK
  4. BUPROPION HCL [Concomitant]
     Active Substance: BUPROPION HYDROCHLORIDE
  5. CLONAZEPAM. [Concomitant]
     Active Substance: CLONAZEPAM
  6. NORCO [Concomitant]
     Active Substance: ACETAMINOPHEN\HYDROCODONE BITARTRATE
  7. BOSULIF [Suspect]
     Active Substance: BOSUTINIB MONOHYDRATE
     Dosage: 1600 MG, DAILY
     Route: 048
     Dates: start: 201602
  8. MELOXICAM. [Concomitant]
     Active Substance: MELOXICAM
     Dosage: UNK
  9. NORVASC [Concomitant]
     Active Substance: AMLODIPINE BESYLATE
  10. SUMATRIPTAN SUCCINATE. [Concomitant]
     Active Substance: SUMATRIPTAN SUCCINATE
  11. FENTANYL. [Concomitant]
     Active Substance: FENTANYL
     Dosage: UNK (FOR 7 YEARS)
  12. BOSULIF [Suspect]
     Active Substance: BOSUTINIB MONOHYDRATE
     Dosage: 400 MG, DAILY (TAKE 4 TABLETS OF 100 MG)
     Route: 048
     Dates: start: 201601, end: 201601
  13. BOSULIF [Suspect]
     Active Substance: BOSUTINIB MONOHYDRATE
     Dosage: 400 MG, DAILY (TAKE 4 TABLETS OF 100 MG)
     Route: 048
     Dates: start: 201602
  14. LORATADINE. [Concomitant]
     Active Substance: LORATADINE
  15. DULOXETINE HCL [Concomitant]
     Active Substance: DULOXETINE HYDROCHLORIDE
  16. NEURONTIN [Concomitant]
     Active Substance: GABAPENTIN
     Dosage: UNK
  17. CARVEDILOL. [Concomitant]
     Active Substance: CARVEDILOL
  18. ADDERALL [Concomitant]
     Active Substance: AMPHETAMINE ASPARTATE\AMPHETAMINE SULFATE\DEXTROAMPHETAMINE SACCHARATE\DEXTROAMPHETAMINE SULFATE
     Dosage: UNK
  19. TESTOSTERONE. [Concomitant]
     Active Substance: TESTOSTERONE
     Route: 061
  20. CLARITIN [Concomitant]
     Active Substance: LORATADINE

REACTIONS (18)
  - Fatigue [Unknown]
  - Bone pain [Unknown]
  - Insomnia [Unknown]
  - Influenza like illness [Unknown]
  - Weight decreased [Unknown]
  - Asthenia [Unknown]
  - Nausea [Recovering/Resolving]
  - Nephrolithiasis [Unknown]
  - Product dose omission issue [Unknown]
  - Pyrexia [Recovered/Resolved]
  - Pain [Recovering/Resolving]
  - Musculoskeletal pain [Unknown]
  - Myalgia [Unknown]
  - Vomiting [Unknown]
  - Scan abnormal [Unknown]
  - Dysphonia [Unknown]
  - Cough [Unknown]
  - Weight increased [Unknown]
